FAERS Safety Report 8908938 (Version 1)
Quarter: 2012Q4

REPORT INFORMATION
  Report Type: 
  Country: US (occurrence: US)
  Receive Date: 20121114
  Receipt Date: 20121114
  Transmission Date: 20130627
  Serious: No
  Sender: FDA-Public Use
  Company Number: US-MYLANLABS-2012S1005679

PATIENT
  Sex: Female

DRUGS (1)
  1. MAXZIDE [Suspect]

REACTIONS (3)
  - Cholecystectomy [Unknown]
  - Sinusitis [Unknown]
  - Pain [Unknown]
